FAERS Safety Report 9290112 (Version 2)
Quarter: 2013Q2

REPORT INFORMATION
  Report Type: Spontaneous
  Country: US (occurrence: None)
  Receive Date: 20130510
  Receipt Date: 20130522
  Transmission Date: 20140414
  Serious: Yes (Other)
  Sender: FDA-Public Use
  Company Number: US-1198083

PATIENT
  Age: 56 Year
  Sex: Female
  Weight: 134 kg

DRUGS (16)
  1. PILOCARPINE HYDROCHLORIDE [Suspect]
     Indication: POSTOPERATIVE CARE
     Dosage: (1GTT QD OS OPHTHALMIC)
     Route: 047
     Dates: start: 20130424, end: 20130426
  2. LOTEMAX [Concomitant]
  3. BESIVANCE [Concomitant]
  4. BROMDAY [Concomitant]
  5. BENADRYL [Concomitant]
  6. CENTRUM [Concomitant]
  7. VITAMIN C [Concomitant]
  8. BABY ASPIRIN [Concomitant]
  9. B COMPLEX [Concomitant]
  10. DHA [Concomitant]
  11. L-LYSINE [Concomitant]
  12. VITAMIN D3 [Concomitant]
  13. DHEA [Concomitant]
  14. CALCIUM 600 + D [Concomitant]
  15. MIDODRINE HCL [Concomitant]
  16. FIORINAL [Concomitant]

REACTIONS (4)
  - Rash [None]
  - Urticaria [None]
  - Pruritus [None]
  - Dermatitis [None]
